FAERS Safety Report 20195334 (Version 3)
Quarter: 2022Q1

REPORT INFORMATION
  Report Type: Spontaneous
  Country: US (occurrence: US)
  Receive Date: 20211216
  Receipt Date: 20220304
  Transmission Date: 20220423
  Serious: No
  Sender: FDA-Public Use
  Company Number: US-KARYOPHARM-2021KPT001525

PATIENT

DRUGS (11)
  1. XPOVIO [Suspect]
     Active Substance: SELINEXOR
     Indication: Plasma cell myeloma
     Dosage: 60 MG, WEEKLY
     Route: 048
     Dates: start: 20211129
  2. XPOVIO [Suspect]
     Active Substance: SELINEXOR
     Dosage: 80 MG, WEEKLY
     Route: 048
     Dates: end: 20220216
  3. KEFLEX [Concomitant]
     Active Substance: CEPHALEXIN
  4. CHOLESTYRAMINE [Concomitant]
     Active Substance: CHOLESTYRAMINE
  5. DECADRON [Concomitant]
     Active Substance: DEXAMETHASONE
  6. NIFEDIPINE [Concomitant]
     Active Substance: NIFEDIPINE
  7. OLANZAPINE [Concomitant]
     Active Substance: OLANZAPINE
  8. VALACYCLOVIR [Concomitant]
     Active Substance: VALACYCLOVIR HYDROCHLORIDE
  9. VELCADE [Concomitant]
     Active Substance: BORTEZOMIB
  10. XGEVA [Concomitant]
     Active Substance: DENOSUMAB
  11. ZOFRAN [Concomitant]
     Active Substance: ONDANSETRON HYDROCHLORIDE

REACTIONS (3)
  - Plasma cell myeloma [Unknown]
  - Fatigue [Not Recovered/Not Resolved]
  - Therapeutic product effect decreased [Unknown]

NARRATIVE: CASE EVENT DATE: 20211201
